FAERS Safety Report 15487968 (Version 1)
Quarter: 2018Q4

REPORT INFORMATION
  Report Type: Spontaneous
  Country: US (occurrence: US)
  Receive Date: 20181011
  Receipt Date: 20181011
  Transmission Date: 20190205
  Serious: No
  Sender: FDA-Public Use
  Company Number: US-SA-2018SA280015

PATIENT
  Age: 13 Year
  Sex: Male

DRUGS (2)
  1. CERDELGA [Suspect]
     Active Substance: ELIGLUSTAT
     Indication: GAUCHER^S DISEASE TYPE III
     Dosage: UNK
     Route: 048
  2. CERDELGA [Suspect]
     Active Substance: ELIGLUSTAT
     Dosage: INCREASED DOSE
     Route: 048

REACTIONS (1)
  - Gastrointestinal disorder [Unknown]
